FAERS Safety Report 8457404-X (Version None)
Quarter: 2012Q2

REPORT INFORMATION
  Report Type: 
  Country: None (occurrence: None)
  Receive Date: 20120621
  Receipt Date: 20120614
  Transmission Date: 20120825
  Serious: Yes (Hospitalization)
  Sender: FDA-Public Use
  Company Number: CHPA2012FR012483

PATIENT
  Sex: Female

DRUGS (3)
  1. PRACTAZIN [Concomitant]
  2. SCOPOLAMINE [Suspect]
     Indication: MOTION SICKNESS
     Dosage: 2 DF, ONCE/SINGLE
     Route: 062
     Dates: start: 20120325, end: 20120326
  3. LEVOTHYROXINE SODIUM [Concomitant]
     Dosage: 100 UG, UNK

REACTIONS (9)
  - DISINHIBITION [None]
  - BALANCE DISORDER [None]
  - AGITATION [None]
  - HEADACHE [None]
  - DISORIENTATION [None]
  - RETROGRADE AMNESIA [None]
  - CONFUSIONAL STATE [None]
  - INCORRECT DOSE ADMINISTERED [None]
  - VERTIGO [None]
